FAERS Safety Report 4343868-X (Version None)
Quarter: 2004Q2

REPORT INFORMATION
  Report Type: 
  Country: None (occurrence: None)
  Receive Date: 20040419
  Receipt Date: 20040407
  Transmission Date: 20050107
  Serious: Yes (Life-Threatening)
  Sender: FDA-Public Use
  Company Number: RO-JNJFOC-20040401276

PATIENT
  Age: 41 Year
  Sex: Female
  Weight: 60 kg

DRUGS (3)
  1. REMICADE [Suspect]
     Indication: RHEUMATOID ARTHRITIS
     Dosage: 3 MG/KG,  INTRAVENOUS
     Route: 042
     Dates: start: 20020101, end: 20040406
  2. METHOTREXATE [Concomitant]
  3. VOLTAREN [Concomitant]

REACTIONS (6)
  - CONJUNCTIVAL HYPERAEMIA [None]
  - DYSPNOEA [None]
  - FLUSHING [None]
  - INCONTINENCE [None]
  - PRURITUS [None]
  - TACHYCARDIA [None]
